FAERS Safety Report 6626550-5 (Version None)
Quarter: 2010Q1

REPORT INFORMATION
  Report Type: 
  Country: None (occurrence: None)
  Receive Date: 20100310
  Receipt Date: 20100225
  Transmission Date: 20100710
  Serious: Yes (Hospitalization)
  Sender: FDA-Public Use
  Company Number: FI-ABBOTT-09P-055-0576726-00

PATIENT
  Sex: Female
  Weight: 3.6 kg

DRUGS (2)
  1. HUMIRA [Suspect]
     Indication: DRUG EXPOSURE DURING PREGNANCY
     Route: 050
  2. HUMIRA [Suspect]

REACTIONS (4)
  - DRUG EXPOSURE DURING PREGNANCY [None]
  - MUSCLE TWITCHING [None]
  - OXYGEN SATURATION ABNORMAL [None]
  - SLEEP APNOEA SYNDROME [None]
